FAERS Safety Report 19009216 (Version 8)
Quarter: 2021Q4

REPORT INFORMATION
  Report Type: Report from Study
  Country: US (occurrence: US)
  Receive Date: 20210315
  Receipt Date: 20211213
  Transmission Date: 20220303
  Serious: Yes (Hospitalization, Other)
  Sender: FDA-Public Use
  Company Number: US-CELGENE-USA-20210303018

PATIENT
  Age: 68 Year
  Sex: Female

DRUGS (22)
  1. ZEPOSIA [Suspect]
     Active Substance: OZANIMOD HYDROCHLORIDE
     Indication: Multiple sclerosis
     Dosage: .92 MILLIGRAM (TITRATION BLISTER)
     Route: 048
     Dates: start: 20201116, end: 20201122
  2. ZEPOSIA [Suspect]
     Active Substance: OZANIMOD HYDROCHLORIDE
     Dosage: ZEPOSIA MAINTENANCE
     Route: 048
     Dates: start: 20201123
  3. ZEPOSIA [Suspect]
     Active Substance: OZANIMOD HYDROCHLORIDE
     Route: 048
     Dates: start: 20200110
  4. COPAXONE [Concomitant]
     Active Substance: GLATIRAMER ACETATE
     Indication: Multiple sclerosis
     Route: 058
     Dates: start: 19900101, end: 20200923
  5. IBUPROFEN [Concomitant]
     Active Substance: IBUPROFEN
     Indication: Myalgia
     Route: 048
  6. ZYRTEC [Concomitant]
     Active Substance: CETIRIZINE HYDROCHLORIDE
     Indication: Insomnia
     Dosage: 5 MILLIGRAM
     Route: 048
  7. ZYRTEC [Concomitant]
     Active Substance: CETIRIZINE HYDROCHLORIDE
     Indication: Multiple allergies
  8. Luna herbal supplement [Concomitant]
     Indication: Insomnia
     Route: 048
  9. AMOXICILLIN [Concomitant]
     Active Substance: AMOXICILLIN
     Indication: Dental care
     Route: 048
  10. METFORMIN [Concomitant]
     Active Substance: METFORMIN HYDROCHLORIDE
     Indication: Type 2 diabetes mellitus
     Dosage: 1000 MILLIGRAM
     Route: 065
  11. ATORVASTATIN [Concomitant]
     Active Substance: ATORVASTATIN
     Indication: Hypercholesterolaemia
     Route: 065
  12. Bayer Baby ASA [Concomitant]
     Indication: Product used for unknown indication
     Route: 048
  13. Breoellipta [Concomitant]
     Indication: Asthma
     Route: 065
  14. PROAIR HFA [Concomitant]
     Active Substance: ALBUTEROL SULFATE
     Indication: Inhalation therapy
     Route: 065
  15. LEVOTHYROXINE [Concomitant]
     Active Substance: LEVOTHYROXINE
     Indication: Product used for unknown indication
     Dosage: 25 MICROGRAM
     Route: 065
  16. Liothyromine [Concomitant]
     Indication: Product used for unknown indication
     Route: 065
  17. BIOTIN [Concomitant]
     Active Substance: BIOTIN
     Indication: Product used for unknown indication
     Route: 065
  18. HERBALS\TURMERIC [Concomitant]
     Active Substance: HERBALS\TURMERIC
     Indication: Product used for unknown indication
     Route: 065
  19. PRASTERONE [Concomitant]
     Active Substance: PRASTERONE
     Indication: Product used for unknown indication
     Route: 065
  20. PROBIOTICS NOS [Concomitant]
     Active Substance: PROBIOTICS NOS
     Indication: Product used for unknown indication
     Route: 065
  21. Folate Iodizyne [Concomitant]
     Indication: Product used for unknown indication
     Route: 065
  22. Luna D3 [Concomitant]
     Indication: Product used for unknown indication
     Route: 065

REACTIONS (12)
  - Generalised tonic-clonic seizure [Recovered/Resolved]
  - Loss of consciousness [Unknown]
  - Ear pain [Unknown]
  - Fatigue [Unknown]
  - Insomnia [Unknown]
  - Nausea [Unknown]
  - Nasal congestion [Unknown]
  - Swelling [Unknown]
  - Tooth infection [Unknown]
  - Pollakiuria [Not Recovered/Not Resolved]
  - Abdominal pain lower [Not Recovered/Not Resolved]
  - Sleep apnoea syndrome [Unknown]

NARRATIVE: CASE EVENT DATE: 20210101
